FAERS Safety Report 7086123-X (Version None)
Quarter: 2010Q4

REPORT INFORMATION
  Report Type: 
  Country: None (occurrence: None)
  Receive Date: 20101105
  Receipt Date: 20101026
  Transmission Date: 20110411
  Serious: Yes (Other)
  Sender: FDA-Public Use
  Company Number: B0681422A

PATIENT
  Age: 85 Year
  Sex: Male

DRUGS (5)
  1. AVODART [Suspect]
     Dosage: 1CAP PER DAY
     Route: 048
     Dates: start: 20090101
  2. PLAVIX [Concomitant]
     Route: 065
  3. KARDEGIC [Concomitant]
     Route: 065
  4. ALFUZOSIN HCL [Concomitant]
     Route: 065
  5. AMLOR [Concomitant]
     Route: 065

REACTIONS (1)
  - THROMBOCYTOPENIA [None]
